FAERS Safety Report 17825013 (Version 2)
Quarter: 2020Q4

REPORT INFORMATION
  Report Type: Report from Study
  Country: US (occurrence: US)
  Receive Date: 20200526
  Receipt Date: 20201118
  Transmission Date: 20210113
  Serious: Yes (Other)
  Sender: FDA-Public Use
  Company Number: US-PFIZER INC-2020206046

PATIENT
  Age: 13 Year

DRUGS (2)
  1. GEMCITABINE HYDROCHLORIDE. [Suspect]
     Active Substance: GEMCITABINE HYDROCHLORIDE
     Indication: EPITHELIOID SARCOMA
     Dosage: 1000 MG/M2 IN NORMAL SALINE INFUSED OVER 60 MIN, CYCLIC (DAYS 1AND 15 IN 28-DAY CYCLE)
     Route: 042
  2. NAB-PACLITAXEL [Suspect]
     Active Substance: PACLITAXEL
     Indication: EPITHELIOID SARCOMA
     Dosage: 125 MG/M2 IN NORMAL SALINE INFUSED OVER 30 MIN, CYCLIC (DAYS 1AND 15 IN 28-DAY CYCLE)
     Route: 042

REACTIONS (3)
  - Thrombocytopenia [Unknown]
  - Anaemia [Unknown]
  - Infection [Unknown]
